FAERS Safety Report 7541729-6 (Version None)
Quarter: 2011Q2

REPORT INFORMATION
  Report Type: 
  Country: None (occurrence: None)
  Receive Date: 20110613
  Receipt Date: 20110602
  Transmission Date: 20111010
  Serious: No
  Sender: FDA-Public Use
  Company Number: US-JNJFOC-20110501067

PATIENT
  Age: 40 Year
  Sex: Female

DRUGS (5)
  1. COGENTIN [Concomitant]
     Route: 065
  2. INVEGA SUSTENNA [Suspect]
     Indication: PRODUCT USED FOR UNKNOWN INDICATION
     Route: 030
     Dates: start: 20100401
  3. LITHIUM CARBONATE [Concomitant]
     Route: 065
  4. INVEGA [Concomitant]
     Route: 048
  5. CITALOPRAM [Concomitant]
     Route: 065

REACTIONS (3)
  - PRODUCT QUALITY ISSUE [None]
  - INJECTION SITE NODULE [None]
  - INJECTION SITE PAIN [None]
